FAERS Safety Report 17889655 (Version 1)
Quarter: 2020Q2

REPORT INFORMATION
  Report Type: Spontaneous
  Country: US (occurrence: US)
  Receive Date: 20200612
  Receipt Date: 20200612
  Transmission Date: 20200714
  Serious: Yes (Hospitalization)
  Sender: FDA-Public Use
  Company Number: US-MYLANLABS-2020M1055221

PATIENT
  Age: 47 Year
  Sex: Male

DRUGS (5)
  1. BUSPIRONE [Suspect]
     Active Substance: BUSPIRONE HYDROCHLORIDE
     Indication: ATTENTION DEFICIT HYPERACTIVITY DISORDER
     Route: 065
  2. BUSPIRONE [Suspect]
     Active Substance: BUSPIRONE HYDROCHLORIDE
     Indication: CONDITION AGGRAVATED
  3. METHYLPHENIDATE. [Suspect]
     Active Substance: METHYLPHENIDATE
     Indication: ATTENTION DEFICIT HYPERACTIVITY DISORDER
     Dosage: 5 MILLIGRAM, BID
     Route: 065
  4. BUSPIRONE [Suspect]
     Active Substance: BUSPIRONE HYDROCHLORIDE
     Indication: PARADOXICAL DRUG REACTION
  5. BUSPIRONE [Suspect]
     Active Substance: BUSPIRONE HYDROCHLORIDE
     Indication: AGITATION

REACTIONS (6)
  - Attention deficit hyperactivity disorder [Recovering/Resolving]
  - Fall [Unknown]
  - Drug ineffective [Unknown]
  - Agitation [Recovering/Resolving]
  - Condition aggravated [Recovering/Resolving]
  - Paradoxical drug reaction [Recovering/Resolving]
